FAERS Safety Report 6299481-0 (Version None)
Quarter: 2009Q3

REPORT INFORMATION
  Report Type: 
  Country: None (occurrence: None)
  Receive Date: 20090806
  Receipt Date: 20090731
  Transmission Date: 20100115
  Serious: Yes (Other)
  Sender: FDA-Public Use
  Company Number: B0586052A

PATIENT
  Sex: Female
  Weight: 26.9 kg

DRUGS (1)
  1. AUGMENTIN [Suspect]
     Indication: PROPHYLAXIS
     Dosage: 1.5ML PER DAY
     Route: 042
     Dates: start: 20090722, end: 20090722

REACTIONS (4)
  - INCORRECT ROUTE OF DRUG ADMINISTRATION [None]
  - PYREXIA [None]
  - TRANSMISSION OF AN INFECTIOUS AGENT VIA A MEDICINAL PRODUCT [None]
  - VOMITING [None]
